FAERS Safety Report 8600672 (Version 2)
Quarter: 2012Q4

REPORT INFORMATION
  Report Type: 
  Country: US (occurrence: US)
  Receive Date: 20120606
  Receipt Date: 20121219
  Transmission Date: 20130627
  Serious: Yes (Hospitalization)
  Sender: FDA-Public Use
  Company Number: US-BAYER-2012-055556

PATIENT
  Age: 27 Year
  Sex: Female

DRUGS (12)
  1. YAZ [Suspect]
     Indication: CONTRACEPTION
     Dosage: UNK
     Dates: start: 20071026, end: 201002
  2. YAZ [Suspect]
     Indication: MENSTRUAL CRAMPS
  3. YASMIN [Suspect]
     Indication: CONTRACEPTION
     Dosage: UNK
     Dates: start: 20060930, end: 200710
  4. YASMIN [Suspect]
     Indication: MENSTRUAL CRAMPS
  5. TORADOL [Concomitant]
     Route: 042
  6. FENTANYL [Concomitant]
     Route: 042
  7. ZOFRAN [Concomitant]
     Route: 042
  8. PERCOCET [Concomitant]
     Route: 048
  9. FLOMAX [Concomitant]
     Route: 048
  10. VYTORIN [Concomitant]
     Route: 048
  11. ZOLOFT [Concomitant]
     Route: 048
  12. DARVOCET [Concomitant]

REACTIONS (6)
  - Cholecystitis chronic [None]
  - Injury [None]
  - Abdominal pain upper [None]
  - Nausea [None]
  - Diarrhoea [None]
  - Pain [None]
